FAERS Safety Report 7195822-0 (Version None)
Quarter: 2010Q4

REPORT INFORMATION
  Report Type: 
  Country: None (occurrence: None)
  Receive Date: 20101223
  Receipt Date: 20101211
  Transmission Date: 20110411
  Serious: Yes (Hospitalization, Other)
  Sender: FDA-Public Use
  Company Number: US-PFIZER INC-US-WYE-H14316410

PATIENT
  Sex: Female
  Weight: 174 kg

DRUGS (8)
  1. CELEBREX [Suspect]
     Indication: SPINAL COLUMN STENOSIS
     Dosage: 100 MG, 1X/DAY
     Route: 048
     Dates: start: 20080101
  2. CELEBREX [Suspect]
     Dosage: 200 MG, 1X/DAY
     Route: 048
  3. ADVIL [Suspect]
     Indication: SPINAL COLUMN STENOSIS
     Dosage: UNK
     Route: 048
  4. PREMPRO [Suspect]
     Dosage: 0.6 MG, 1X/DAY
  5. PREMPRO [Suspect]
     Dosage: 0.3 MG, UNK
  6. ACETAMINOPHEN [Suspect]
     Indication: ARTHRITIS
     Dosage: UNK
     Route: 048
  7. PROVELLA-14 [Concomitant]
     Route: 048
  8. PROVELLA-14 [Concomitant]
     Route: 065

REACTIONS (4)
  - ANXIETY [None]
  - ARTHRITIS [None]
  - GASTRIC DISORDER [None]
  - PRURITUS [None]
